FAERS Safety Report 15774808 (Version 4)
Quarter: 2019Q2

REPORT INFORMATION
  Report Type: Spontaneous
  Country: NL (occurrence: NL)
  Receive Date: 20181230
  Receipt Date: 20190412
  Transmission Date: 20190711
  Serious: Yes (Hospitalization, Other)
  Sender: FDA-Public Use
  Company Number: NL-BEH-2018097974

PATIENT
  Sex: Male

DRUGS (1)
  1. PRIVIGEN [Suspect]
     Active Substance: HUMAN IMMUNOGLOBULIN G
     Indication: NEUROPATHY PERIPHERAL
     Dosage: 90 G, QOW
     Route: 065
     Dates: start: 20181204

REACTIONS (5)
  - Generalised tonic-clonic seizure [Recovered/Resolved]
  - Intracranial venous sinus thrombosis [Recovering/Resolving]
  - Pachymeningitis [Recovering/Resolving]
  - Epilepsy [Recovered/Resolved]
  - Meningitis aseptic [Recovering/Resolving]

NARRATIVE: CASE EVENT DATE: 201812
